FAERS Safety Report 23555156 (Version 2)
Quarter: 2024Q1

REPORT INFORMATION
  Report Type: Spontaneous
  Country: TW (occurrence: TW)
  Receive Date: 20240222
  Receipt Date: 20240229
  Transmission Date: 20240410
  Serious: Yes (Other)
  Sender: FDA-Public Use
  Company Number: TW-009507513-2402TWN007130

PATIENT
  Age: 69 Year
  Sex: Female
  Weight: 44.4 kg

DRUGS (2)
  1. PEMBROLIZUMAB [Suspect]
     Active Substance: PEMBROLIZUMAB
     Indication: Endometrial adenocarcinoma
     Dosage: 200 MG
     Dates: start: 2023
  2. LENVATINIB MESYLATE [Suspect]
     Active Substance: LENVATINIB MESYLATE
     Indication: Endometrial adenocarcinoma
     Dosage: 10 MILLIGRAM, QD
     Route: 048

REACTIONS (12)
  - Colitis [Unknown]
  - Malignant hypertension [Unknown]
  - Tachycardia [Unknown]
  - Anxiety [Unknown]
  - Haemorrhage [Unknown]
  - Fatigue [Unknown]
  - Ill-defined disorder [Unknown]
  - Dysuria [Unknown]
  - Lower urinary tract symptoms [Unknown]
  - Vaginal haemorrhage [Unknown]
  - Haematotoxicity [Unknown]
  - Product use issue [Unknown]
